FAERS Safety Report 5585172-8 (Version None)
Quarter: 2008Q1

REPORT INFORMATION
  Report Type: 
  Country: None (occurrence: None)
  Receive Date: 20080108
  Receipt Date: 20080108
  Transmission Date: 20080703
  Serious: No
  Sender: FDA-Public Use
  Company Number: None

PATIENT
  Age: 74 Year
  Sex: Female

DRUGS (7)
  1. LIPITOR [Suspect]
     Dates: start: 20060402, end: 20060727
  2. AMIODARONE HCL [Suspect]
     Dates: start: 20060402, end: 20060727
  3. ATENOLOL [Concomitant]
  4. NORVASC [Concomitant]
  5. COZAAR [Concomitant]
  6. MAXZIDE [Concomitant]
  7. ECOTRIN [Concomitant]

REACTIONS (3)
  - ASPARTATE AMINOTRANSFERASE INCREASED [None]
  - BLOOD ALKALINE PHOSPHATASE INCREASED [None]
  - LIVER INJURY [None]
